FAERS Safety Report 17084714 (Version 4)
Quarter: 2019Q4

REPORT INFORMATION
  Report Type: Report from Study
  Country: US (occurrence: US)
  Receive Date: 20191127
  Receipt Date: 20191227
  Transmission Date: 20200122
  Serious: Yes (Hospitalization, Other)
  Sender: FDA-Public Use
  Company Number: US-ACTELION-A-NJ2019-198584

PATIENT
  Sex: Female
  Weight: 97.05 kg

DRUGS (6)
  1. OPSUMIT [Suspect]
     Active Substance: MACITENTAN
     Indication: PULMONARY ARTERIAL HYPERTENSION
     Dosage: 10 MG
     Route: 048
  2. TADALAFIL. [Concomitant]
     Active Substance: TADALAFIL
     Dosage: UNK
  3. XARELTO [Concomitant]
     Active Substance: RIVAROXABAN
     Dosage: UNK
  4. UPTRAVI [Suspect]
     Active Substance: SELEXIPAG
     Indication: PULMONARY ARTERIAL HYPERTENSION
     Dosage: 800 MCG, BID
     Route: 048
  5. UPTRAVI [Suspect]
     Active Substance: SELEXIPAG
     Dosage: 1200 MCG, BID
     Route: 048
     Dates: end: 201911
  6. UPTRAVI [Suspect]
     Active Substance: SELEXIPAG
     Dosage: 200 MCG,
     Route: 048

REACTIONS (11)
  - Oedema peripheral [Unknown]
  - Surgery [Unknown]
  - Uterine leiomyoma [Unknown]
  - Headache [Unknown]
  - Vaginal haemorrhage [Unknown]
  - Neoplasm malignant [Unknown]
  - Product dose omission [Unknown]
  - Pain in jaw [Unknown]
  - Myalgia [Unknown]
  - Arthralgia [Unknown]
  - Uterine cancer [Unknown]
